FAERS Safety Report 18475686 (Version 1)
Quarter: 2020Q4

REPORT INFORMATION
  Report Type: Spontaneous
  Country: US (occurrence: US)
  Receive Date: 20201106
  Receipt Date: 20201106
  Transmission Date: 20210114
  Serious: No
  Sender: FDA-Public Use
  Company Number: US-ELI_LILLY_AND_COMPANY-US202011003067

PATIENT

DRUGS (1)
  1. REYVOW [Suspect]
     Active Substance: LASMIDITAN
     Indication: MIGRAINE
     Route: 048

REACTIONS (2)
  - Sedation [Recovered/Resolved]
  - Dizziness [Recovered/Resolved]
